FAERS Safety Report 8984473 (Version 2)
Quarter: 2013Q1

REPORT INFORMATION
  Report Type: Spontaneous
  Country: BR (occurrence: BR)
  Receive Date: 20121226
  Receipt Date: 20130207
  Transmission Date: 20140127
  Serious: Yes (Death, Other)
  Sender: FDA-Public Use
  Company Number: BR-PFIZER INC-2012218594

PATIENT
  Age: 73 Year
  Sex: Female
  Weight: 45 kg

DRUGS (3)
  1. SUTENT [Suspect]
     Indication: RENAL CELL CARCINOMA
     Dosage: 50 MG, 1X/DAY (CYCLIC 4X2)
     Route: 048
     Dates: start: 2012, end: 20121122
  2. OMEPRAZOLE [Concomitant]
     Indication: NAUSEA
     Dosage: UNK
  3. MORPHINE [Concomitant]
     Indication: PAIN
     Dosage: UNK

REACTIONS (11)
  - Death [Fatal]
  - Respiratory failure [Unknown]
  - Swelling face [Unknown]
  - Eye swelling [Unknown]
  - Weight increased [Unknown]
  - Neck pain [Unknown]
  - Nausea [Unknown]
  - Vomiting [Not Recovered/Not Resolved]
  - Neck pain [Unknown]
  - Eating disorder [Unknown]
  - Pain [Unknown]
